FAERS Safety Report 15317055 (Version 9)
Quarter: 2019Q2

REPORT INFORMATION
  Report Type: Spontaneous
  Country: US (occurrence: US)
  Receive Date: 20180824
  Receipt Date: 20190624
  Transmission Date: 20190711
  Serious: Yes (Hospitalization, Other)
  Sender: FDA-Public Use
  Company Number: US-PFIZER INC-2018018743

PATIENT
  Age: 69 Year
  Sex: Male
  Weight: 86 kg

DRUGS (9)
  1. AMLODIPINE [Concomitant]
     Active Substance: AMLODIPINE BESYLATE
     Indication: BLOOD PRESSURE ABNORMAL
     Dosage: 1 DF, DAILY (IN THE MORNING)
     Route: 048
     Dates: start: 20030208
  2. AMITRIPTYLINE [Concomitant]
     Active Substance: AMITRIPTYLINE
     Indication: NEURALGIA
     Dosage: 30 MG, UNK
     Dates: start: 2019
  3. LYRICA [Suspect]
     Active Substance: PREGABALIN
     Dosage: 1 DF, UNK
  4. LYRICA [Suspect]
     Active Substance: PREGABALIN
     Dosage: 3 DF, UNK
  5. AMLODIPINE BESILATE/OLMESARTAN MEDOXOMIL [Concomitant]
     Indication: HYPERTENSION
     Dosage: 20 MG, UNK
     Dates: start: 2003
  6. TAMSULOSIN HCL [Concomitant]
     Active Substance: TAMSULOSIN HYDROCHLORIDE
     Indication: PROSTATE CANCER
     Dosage: 0.4 MG, UNK
     Dates: start: 2015
  7. PANTOPRAZOLE SODIUM. [Concomitant]
     Active Substance: PANTOPRAZOLE SODIUM
     Indication: GASTROOESOPHAGEAL REFLUX DISEASE
     Dosage: 40 MG, UNK
     Dates: start: 2015
  8. LYRICA [Suspect]
     Active Substance: PREGABALIN
     Indication: NEUROPATHY PERIPHERAL
     Dosage: 100 MG, 2X/DAY (ONE IN THE MORNING, ONE IN THE EVENING BEFORE BED)
     Route: 048
     Dates: start: 2001
  9. ALLOPURINOL. [Concomitant]
     Active Substance: ALLOPURINOL
     Indication: GOUT
     Dosage: 300 MG, ALTERNATE DAY
     Dates: start: 2008

REACTIONS (10)
  - Anxiety [Recovered/Resolved]
  - Intentional product use issue [Unknown]
  - Withdrawal syndrome [Recovered/Resolved]
  - Coma [Recovered/Resolved]
  - Anaemia [Recovered/Resolved]
  - Feeling abnormal [Recovered/Resolved]
  - Dermatitis contact [Unknown]
  - Insomnia [Recovered/Resolved]
  - Acute kidney injury [Recovered/Resolved]
  - Sepsis [Recovered/Resolved]

NARRATIVE: CASE EVENT DATE: 20180628
